FAERS Safety Report 7111290-9 (Version None)
Quarter: 2010Q4

REPORT INFORMATION
  Report Type: 
  Country: None (occurrence: None)
  Receive Date: 20101118
  Receipt Date: 20101108
  Transmission Date: 20110411
  Serious: Yes (Other)
  Sender: FDA-Public Use
  Company Number: PHHY2010JP59732

PATIENT
  Sex: Female

DRUGS (11)
  1. AMN107 AMN+CAP [Suspect]
     Indication: CHRONIC MYELOID LEUKAEMIA
     Dosage: 400 MG DAILY
     Route: 048
     Dates: start: 20100527, end: 20100630
  2. DIOVAN [Concomitant]
     Dosage: 80 MG, UNK
     Route: 048
     Dates: start: 20100527
  3. ZYLORIC [Concomitant]
     Indication: CHRONIC MYELOID LEUKAEMIA
     Dosage: 50 MG, UNK
     Route: 048
     Dates: start: 20100422
  4. ZYLORIC [Concomitant]
     Dosage: 100 MG, UNK
     Route: 048
  5. URSO 250 [Concomitant]
     Dosage: 600 MG, UNK
     Route: 048
     Dates: start: 20100527
  6. NEOPHAGEN [Concomitant]
     Dosage: 9 DF, UNK
     Route: 048
     Dates: start: 20100527
  7. DIART [Concomitant]
     Dosage: 30 MG, UNK
     Route: 048
     Dates: start: 20100527
  8. AMARYL [Concomitant]
     Dosage: 2 MG, UNK
     Route: 048
     Dates: start: 20100527
  9. GLUCOBAY [Concomitant]
     Dosage: 300 MG, UNK
     Route: 048
  10. OMEPRAL [Concomitant]
     Dosage: 20 MG, UNK
     Route: 048
     Dates: start: 20100527
  11. PROMAC [Concomitant]
     Dosage: 150 MG, UNK
     Route: 048
     Dates: start: 20100527

REACTIONS (2)
  - CONDITION AGGRAVATED [None]
  - HEPATIC NEOPLASM MALIGNANT [None]
